FAERS Safety Report 12074178 (Version 2)
Quarter: 2016Q1

REPORT INFORMATION
  Report Type: Report from Study
  Country: CZ (occurrence: CZ)
  Receive Date: 20160212
  Receipt Date: 20160316
  Transmission Date: 20160526
  Serious: Yes (Death, Life-Threatening, Hospitalization, Disabling, Other)
  Sender: FDA-Public Use
  Company Number: CZ-AMGEN-CZECT2015140353

PATIENT
  Age: 71 Year
  Sex: Male

DRUGS (17)
  1. ANOPYRIN [Concomitant]
     Active Substance: ASPIRIN
     Dosage: 100 MG, UNK
     Route: 048
     Dates: start: 2000, end: 20151217
  2. TRITTICO [Concomitant]
     Active Substance: TRAZODONE HYDROCHLORIDE
     Dosage: 50 MG, UNK
     Route: 047
     Dates: start: 2012, end: 20151216
  3. GLURENORM [Concomitant]
     Dosage: 15 MG, UNK
     Route: 048
     Dates: start: 2000, end: 20151217
  4. DUROGESIC [Concomitant]
     Active Substance: FENTANYL
     Dosage: 25 MCG, UNK
     Route: 023
     Dates: start: 2012, end: 20151222
  5. CALCIUM [Concomitant]
     Active Substance: CALCIUM
     Dosage: 500 MG, UNK
     Route: 048
     Dates: start: 2012, end: 20151222
  6. NOVALGIN [Concomitant]
     Active Substance: METAMIZOLE SODIUM
     Dosage: 1 UNK, UNK
     Route: 048
     Dates: start: 2012, end: 20151217
  7. LOSEPRAZOL [Concomitant]
     Active Substance: OMEPRAZOLE
     Dosage: 20 MG, UNK
     Route: 048
     Dates: start: 2012, end: 20151217
  8. COTRIMAXAZOL [Concomitant]
     Dosage: 480 MG, UNK
     Route: 048
     Dates: start: 2012, end: 20151222
  9. IMODIUM [Concomitant]
     Active Substance: LOPERAMIDE HYDROCHLORIDE
     Dosage: 1 UNK, UNK
     Route: 048
     Dates: start: 2012, end: 20151217
  10. CARFILZOMIB [Suspect]
     Active Substance: CARFILZOMIB
     Indication: PLASMA CELL MYELOMA
     Dosage: 40 MG, PER CHEMO REGIM
     Route: 042
     Dates: start: 20151217
  11. DEXAMETHASONE. [Suspect]
     Active Substance: DEXAMETHASONE
     Indication: PLASMA CELL MYELOMA
     Dosage: 40 MG, PER CHEMO REGIM
     Route: 042
     Dates: start: 20151217, end: 20151217
  12. BISOPROLOL [Concomitant]
     Active Substance: BISOPROLOL
     Dosage: 5 MG, UNK
     Route: 048
     Dates: start: 2000, end: 20151222
  13. NITROGLYCERIN. [Concomitant]
     Active Substance: NITROGLYCERIN
     Dosage: 1 UNK, UNK
     Route: 048
     Dates: start: 2000, end: 20151222
  14. FRONTIN [Concomitant]
     Active Substance: ALPRAZOLAM
     Dosage: 0.25 MG, UNK
     Route: 048
     Dates: start: 2012, end: 20151216
  15. PROVIRSAN [Concomitant]
     Dosage: 200 MG, UNK
     Route: 048
     Dates: start: 2012, end: 20151217
  16. TORECAN [Concomitant]
     Active Substance: THIETHYLPERAZINE MALATE
     Dosage: 1 UNK, UNK
     Route: 048
     Dates: start: 2012, end: 20151217
  17. TARGIN [Concomitant]
     Active Substance: NALOXONE HYDROCHLORIDE\OXYCODONE HYDROCHLORIDE
     Dosage: 10 MG, UNK
     Route: 048
     Dates: start: 2012

REACTIONS (1)
  - Disease progression [Fatal]

NARRATIVE: CASE EVENT DATE: 20151217
